FAERS Safety Report 24439627 (Version 1)
Quarter: 2024Q4

REPORT INFORMATION
  Report Type: Spontaneous
  Country: PT (occurrence: PT)
  Receive Date: 20241015
  Receipt Date: 20241015
  Transmission Date: 20250114
  Serious: Yes (Hospitalization, Other)
  Sender: B BRAUN
  Company Number: PT-B.Braun Medical Inc.-2163117

PATIENT
  Age: 80 Year
  Sex: Female

DRUGS (5)
  1. ACETAMINOPHEN [Suspect]
     Active Substance: ACETAMINOPHEN
     Indication: Pyrexia
  2. IBUPROFEN [Suspect]
     Active Substance: IBUPROFEN
  3. MIRTAZAPINE [Interacting]
     Active Substance: MIRTAZAPINE
  4. TRAMADOL [Interacting]
     Active Substance: TRAMADOL
  5. LORAZEPAM [Suspect]
     Active Substance: LORAZEPAM

REACTIONS (1)
  - Eosinophilia [Recovered/Resolved]
